FAERS Safety Report 6593836-2 (Version None)
Quarter: 2010Q1

REPORT INFORMATION
  Report Type: 
  Country: None (occurrence: None)
  Receive Date: 20100222
  Receipt Date: 20100212
  Transmission Date: 20100710
  Serious: Yes (Other)
  Sender: FDA-Public Use
  Company Number: US-JNJFOC-20091005636

PATIENT
  Age: 67 Year
  Sex: Female
  Weight: 76.2 kg

DRUGS (9)
  1. TYLENOL [Suspect]
     Indication: ARTHRALGIA
     Route: 048
  2. TYLENOL [Suspect]
     Route: 048
  3. TYLENOL [Suspect]
     Route: 048
  4. TYLENOL [Suspect]
     Indication: FIBROMYALGIA
     Route: 048
  5. TYLENOL [Suspect]
     Route: 048
  6. TYLENOL [Suspect]
     Route: 048
  7. LISINOPRIL [Concomitant]
     Indication: HYPERTENSION
  8. MULTI-VITAMINS [Concomitant]
     Indication: VITAMIN SUPPLEMENTATION
  9. TUMS [Concomitant]
     Indication: MINERAL SUPPLEMENTATION

REACTIONS (3)
  - DRUG WITHDRAWAL HEADACHE [None]
  - HEPATOMEGALY [None]
  - INTENTIONAL DRUG MISUSE [None]
